FAERS Safety Report 8259456-9 (Version None)
Quarter: 2012Q2

REPORT INFORMATION
  Report Type: 
  Country: None (occurrence: None)
  Receive Date: 20120404
  Receipt Date: 20120327
  Transmission Date: 20120825
  Serious: Yes (Hospitalization, Disabling)
  Sender: FDA-Public Use
  Company Number: US-ACTELION-A-NJ2012-60874

PATIENT

DRUGS (4)
  1. COUMADIN [Concomitant]
  2. TRACLEER [Suspect]
     Indication: PULMONARY ARTERIAL HYPERTENSION
     Dosage: UNK
     Route: 048
     Dates: start: 20031202
  3. REMODULIN [Concomitant]
  4. REVATIO [Concomitant]

REACTIONS (8)
  - POST PROCEDURAL HAEMORRHAGE [None]
  - INTRA-ABDOMINAL HAEMATOMA [None]
  - ABDOMINAL PAIN [None]
  - PREGNANCY [None]
  - CAESAREAN SECTION [None]
  - CLOSTRIDIAL INFECTION [None]
  - HYSTERECTOMY [None]
  - DIARRHOEA [None]
